FAERS Safety Report 9173739 (Version 2)
Quarter: 2013Q2

REPORT INFORMATION
  Report Type: Report from Study
  Country: US (occurrence: US)
  Receive Date: 20130320
  Receipt Date: 20130416
  Transmission Date: 20140414
  Serious: Yes (Death, Hospitalization, Other)
  Sender: FDA-Public Use
  Company Number: US-ASTELLAS-2013US002509

PATIENT
  Age: 47 Year
  Sex: Male
  Weight: 97 kg

DRUGS (18)
  1. ERLOTINIB TABLET [Suspect]
     Indication: BILE DUCT CANCER
     Dosage: 100 MG, DAYS 3-8 AND 17-22
     Route: 048
     Dates: start: 20121109, end: 20130226
  2. GEMCITABINE [Suspect]
     Indication: BILE DUCT CANCER
     Dosage: 800 MG/M2, CYCLIC DAY 1 AND 15
     Route: 042
     Dates: start: 20121107, end: 20130220
  3. GEMCITABINE [Suspect]
     Dosage: 1688 MG, UNKNOWN/D
     Route: 065
     Dates: end: 20130220
  4. OXALIPLATIN [Suspect]
     Indication: BILE DUCT CANCER
     Dosage: 85 MG/M2, CYCLIC, DAY 2 AND 16
     Route: 042
     Dates: start: 20121108, end: 20130221
  5. OXALIPLATIN [Suspect]
     Dosage: 179 MG, UNKNOWN/D
     Route: 065
     Dates: end: 20130221
  6. METFORMIN [Concomitant]
     Indication: PRODUCT USED FOR UNKNOWN INDICATION
     Dosage: 500 MG, BID
     Route: 048
  7. SIMVASTATIN [Concomitant]
     Indication: PRODUCT USED FOR UNKNOWN INDICATION
     Dosage: 40 MG, UID/QD
     Route: 048
  8. COLCRYS [Concomitant]
     Indication: PRODUCT USED FOR UNKNOWN INDICATION
     Dosage: 0.6 MG, QOD
     Route: 048
  9. ULORIC [Concomitant]
     Indication: PRODUCT USED FOR UNKNOWN INDICATION
     Dosage: 40 MG, QOD
     Route: 048
  10. DOCUSATE SODIUM [Concomitant]
     Indication: PRODUCT USED FOR UNKNOWN INDICATION
     Dosage: 2 DF, UID/QD
     Route: 048
  11. ZOFRAN                             /00955302/ [Concomitant]
     Indication: PRODUCT USED FOR UNKNOWN INDICATION
     Dosage: 8 MG, Q8 HOURS
     Route: 048
  12. PROMETHAZINE [Concomitant]
     Indication: NAUSEA
     Dosage: 1-2 DF, PRN
     Route: 048
  13. DYNACIN [Concomitant]
     Indication: PRODUCT USED FOR UNKNOWN INDICATION
     Dosage: 1 DF, Q12 HOURS
     Route: 048
  14. MS CONTIN [Concomitant]
     Indication: PAIN
     Dosage: 1-2 DF, BID
     Route: 048
  15. MS CONTIN [Concomitant]
     Dosage: 1 DF, PRN
     Route: 048
  16. CREON [Concomitant]
     Indication: PRODUCT USED FOR UNKNOWN INDICATION
     Dosage: 2 DF, WITH MEALS AND 1 DF WITH SNACKS
     Route: 048
  17. LASIX                              /00032601/ [Concomitant]
     Indication: PRODUCT USED FOR UNKNOWN INDICATION
     Dosage: 1 DF, BID
     Route: 048
  18. ALDACTONE                          /00006201/ [Concomitant]
     Indication: PRODUCT USED FOR UNKNOWN INDICATION
     Dosage: 2 DF, BID
     Route: 048

REACTIONS (8)
  - Off label use [Unknown]
  - Blood sodium decreased [Unknown]
  - Diarrhoea [Unknown]
  - Dehydration [Unknown]
  - Cholangiocarcinoma [Fatal]
  - Ascites [Unknown]
  - Liver disorder [Unknown]
  - Blood creatinine increased [Unknown]
